FAERS Safety Report 9739488 (Version 1)
Quarter: 2013Q4

REPORT INFORMATION
  Report Type: Report from Study
  Country: LB (occurrence: LB)
  Receive Date: 20131209
  Receipt Date: 20131209
  Transmission Date: 20140711
  Serious: Yes (Life-Threatening, Hospitalization)
  Sender: FDA-Public Use
  Company Number: LB-SA-2013SA127495

PATIENT
  Age: 53 Year
  Sex: Male

DRUGS (9)
  1. LANTUS SOLOSTAR [Suspect]
     Indication: DIABETES MELLITUS
     Dosage: DOSE:30 UNIT(S)
     Route: 058
     Dates: start: 201304
  2. SOLOSTAR [Concomitant]
     Dates: start: 201304
  3. DIAMICRON [Concomitant]
     Indication: DIABETES MELLITUS
     Route: 048
  4. GLUCOPHAGE [Concomitant]
     Indication: DIABETES MELLITUS
     Route: 048
  5. DIOVAN [Concomitant]
     Route: 048
  6. ASPICOT [Concomitant]
     Route: 048
  7. CONCOR [Concomitant]
     Route: 048
  8. TULIP [Concomitant]
     Route: 048
  9. PARIET [Concomitant]
     Route: 048

REACTIONS (1)
  - Gastric haemorrhage [Unknown]
